FAERS Safety Report 20818684 (Version 2)
Quarter: 2022Q2

REPORT INFORMATION
  Report Type: Spontaneous
  Country: AU (occurrence: AU)
  Receive Date: 20220512
  Receipt Date: 20220523
  Transmission Date: 20220721
  Serious: Yes (Life-Threatening, Hospitalization, Other)
  Sender: FDA-Public Use
  Company Number: AU-PFIZER INC-202200657967

PATIENT
  Age: 7 Decade

DRUGS (3)
  1. SODIUM BICARBONATE [Suspect]
     Active Substance: SODIUM BICARBONATE
     Indication: Electrocardiogram QRS complex prolonged
     Dosage: REPEATED BOLUSES
     Route: 040
  2. SODIUM BICARBONATE [Suspect]
     Active Substance: SODIUM BICARBONATE
     Indication: Cardiotoxicity
  3. SODIUM BICARBONATE [Suspect]
     Active Substance: SODIUM BICARBONATE
     Indication: Haemodynamic instability

REACTIONS (5)
  - Toxicity to various agents [Unknown]
  - Hypokalaemia [Unknown]
  - Hypernatraemia [Unknown]
  - Alkalosis [Unknown]
  - Hypercapnia [Not Recovered/Not Resolved]
